FAERS Safety Report 7265343-5 (Version None)
Quarter: 2011Q1

REPORT INFORMATION
  Report Type: 
  Country: None (occurrence: None)
  Receive Date: 20110131
  Receipt Date: 20110127
  Transmission Date: 20110831
  Serious: No
  Sender: FDA-Public Use
  Company Number: US-ROXANE LABORATORIES, INC.-2011-RO-00024RO

PATIENT
  Age: 85 Year
  Sex: Female

DRUGS (1)
  1. METHADONE [Suspect]
     Indication: PAIN
     Dosage: 30 MG
     Route: 048

REACTIONS (1)
  - DRUG INEFFECTIVE [None]
